FAERS Safety Report 8895330 (Version 2)
Quarter: 2012Q4

REPORT INFORMATION
  Report Type: 
  Country: IT (occurrence: IT)
  Receive Date: 20121108
  Receipt Date: 20121210
  Transmission Date: 20130627
  Serious: Yes (Death, Other)
  Sender: FDA-Public Use
  Company Number: IT-MILLENNIUM PHARMACEUTICALS, INC.-2012-07744

PATIENT

DRUGS (3)
  1. VELCADE [Suspect]
     Indication: MULTIPLE MYELOMA
     Dosage: 1.3 mg/m2, Cyclic
     Route: 040
  2. MELPHALAN [Suspect]
     Indication: MULTIPLE MYELOMA
     Dosage: 24 mg, Cyclic
     Route: 048
  3. PREDNISONE [Suspect]
     Indication: MULTIPLE MYELOMA
     Dosage: 50 mg, Cyclic

REACTIONS (1)
  - Infection [Fatal]
